FAERS Safety Report 6773945-5 (Version None)
Quarter: 2010Q2

REPORT INFORMATION
  Report Type: 
  Country: None (occurrence: None)
  Receive Date: 20100617
  Receipt Date: 20100610
  Transmission Date: 20101027
  Serious: Yes (Other)
  Sender: FDA-Public Use
  Company Number: PHHO2009US02519

PATIENT
  Sex: Male
  Weight: 94.603 kg

DRUGS (8)
  1. CERTICAN [Suspect]
     Indication: RENAL TRANSPLANT
     Dosage: 4.0 MG
     Route: 048
     Dates: start: 20041209, end: 20041209
  2. CERTICAN [Suspect]
     Dosage: 4.0 MG, BID
     Route: 048
     Dates: start: 20041210, end: 20050831
  3. CERTICAN [Suspect]
     Dosage: 7.0 MG
     Route: 048
     Dates: start: 20050901, end: 20050901
  4. CERTICAN [Suspect]
     Dosage: 3.0 MG, BID
     Route: 048
     Dates: start: 20050902, end: 20060827
  5. CERTICAN [Suspect]
     Dosage: 5.25 MG
     Route: 048
     Dates: start: 20060828, end: 20060828
  6. CERTICAN [Suspect]
     Dosage: 2.25 MG, BID
     Route: 048
     Dates: start: 20060829, end: 20080826
  7. CERTICAN [Suspect]
     Dosage: 2.25 MG / DAY
     Route: 048
     Dates: start: 20080827
  8. CELLCEPT [Concomitant]
     Indication: RENAL TRANSPLANT
     Dosage: 1000 MG, BID
     Route: 048
     Dates: start: 20030912

REACTIONS (3)
  - BASAL CELL CARCINOMA [None]
  - SKIN LESION EXCISION [None]
  - SKIN ULCER [None]
